FAERS Safety Report 4284988-8 (Version None)
Quarter: 2004Q1

REPORT INFORMATION
  Report Type: 
  Country: None (occurrence: None)
  Receive Date: 20040202
  Receipt Date: 20040127
  Transmission Date: 20041129
  Serious: Yes (Hospitalization)
  Sender: FDA-Public Use
  Company Number: MK200401-0339-1

PATIENT
  Age: 41 Year
  Sex: Female

DRUGS (4)
  1. PAMELOR [Suspect]
     Dosage: 10MG BID
     Dates: start: 20031218, end: 20031228
  2. FLUOXETINE HCL [Suspect]
     Dosage: 20MG DAILY
     Dates: start: 20031218
  3. LESCOL [Concomitant]
  4. OLCADIL [Concomitant]

REACTIONS (6)
  - ASTHENIA [None]
  - DIARRHOEA [None]
  - EXTRASYSTOLES [None]
  - MALAISE [None]
  - NAUSEA [None]
  - PALPITATIONS [None]
